FAERS Safety Report 20161035 (Version 19)
Quarter: 2022Q3

REPORT INFORMATION
  Report Type: Spontaneous
  Country: PL (occurrence: PL)
  Receive Date: 20211208
  Receipt Date: 20220822
  Transmission Date: 20221027
  Serious: Yes (Hospitalization, Disabling, Other)
  Sender: FDA-Public Use
  Company Number: PL-MYLANLABS-2021M1088905

PATIENT
  Age: 83 Year
  Sex: Female
  Weight: 91 kg

DRUGS (232)
  1. OMEPRAZOLE [Interacting]
     Active Substance: OMEPRAZOLE
     Indication: Product used for unknown indication
     Dosage: UNK
     Route: 065
  2. OMEPRAZOLE [Interacting]
     Active Substance: OMEPRAZOLE
     Dosage: 1 DOSAGE FORM, BID
     Route: 065
  3. OMEPRAZOLE [Interacting]
     Active Substance: OMEPRAZOLE
     Dosage: (0.5 DAY)1-1-0
     Route: 065
  4. OMEPRAZOLE [Interacting]
     Active Substance: OMEPRAZOLE
     Dosage: 40 MILLIGRAM, QD
     Route: 065
  5. OMEPRAZOLE [Interacting]
     Active Substance: OMEPRAZOLE
     Dosage: 20 MG, BID (1-1-0)
     Route: 065
  6. OMEPRAZOLE [Interacting]
     Active Substance: OMEPRAZOLE
     Dosage: 100 MILLIGRAM, 1-1-0
     Route: 065
  7. OMEPRAZOLE [Interacting]
     Active Substance: OMEPRAZOLE
     Dosage: 20 MILLIGRAM, QD
     Route: 065
  8. OMEPRAZOLE [Interacting]
     Active Substance: OMEPRAZOLE
     Dosage: 200 MILLIGRAM, QD
     Route: 065
  9. OMEPRAZOLE [Interacting]
     Active Substance: OMEPRAZOLE
     Dosage: 40 MILLIGRAM, QD, 20 MG, 2X/DAY (EVERY 12 HOURS)
     Route: 048
  10. ACETAMINOPHEN [Interacting]
     Active Substance: ACETAMINOPHEN
     Indication: Product used for unknown indication
     Dosage: 0-0-1
     Route: 048
  11. ACETAMINOPHEN [Interacting]
     Active Substance: ACETAMINOPHEN
     Dosage: 1 DOSAGE FORM, QD
     Route: 065
  12. ACETAMINOPHEN [Interacting]
     Active Substance: ACETAMINOPHEN
     Dosage: (0.5 DAY) 1-0-1
     Route: 065
  13. ACETAMINOPHEN [Interacting]
     Active Substance: ACETAMINOPHEN
     Dosage: UNK, QD (0-0-1)
     Route: 065
  14. ACETAMINOPHEN [Interacting]
     Active Substance: ACETAMINOPHEN
     Dosage: 1000 MILLIGRAM, QD
     Route: 065
  15. ACETAMINOPHEN [Interacting]
     Active Substance: ACETAMINOPHEN
     Dosage: 500 MILLIGRAM, QD
     Route: 048
  16. ACETAMINOPHEN [Interacting]
     Active Substance: ACETAMINOPHEN
     Dosage: 500 MILLIGRAM, BID ((0.5 DAY) 1-0-1)
     Route: 065
  17. ACETAMINOPHEN [Interacting]
     Active Substance: ACETAMINOPHEN
     Route: 065
  18. DEXTROSE [Interacting]
     Active Substance: DEXTROSE
     Indication: Product used for unknown indication
     Dosage: 1.5 MILLIGRAM (INTERMITTENTLY)
     Route: 065
  19. DEXTROSE [Interacting]
     Active Substance: DEXTROSE
     Dosage: UNK, PRN
     Route: 065
  20. DEXTROSE [Interacting]
     Active Substance: DEXTROSE
     Dosage: UNK
     Route: 065
  21. DEXTROSE [Interacting]
     Active Substance: DEXTROSE
     Dosage: UNK,AS NECESSARY
     Route: 065
  22. DEXTROSE [Interacting]
     Active Substance: DEXTROSE
     Dosage: 1,5 + 125 MG, AD HOC
     Route: 065
  23. ALPRAZOLAM [Interacting]
     Active Substance: ALPRAZOLAM
     Indication: Depression
     Dosage: UNK
     Route: 065
  24. ALPRAZOLAM [Interacting]
     Active Substance: ALPRAZOLAM
     Dosage: WHEN NECESSARY, ON AVERAGE 2/24 H
     Route: 065
  25. ALPRAZOLAM [Interacting]
     Active Substance: ALPRAZOLAM
     Dosage: 2 DOSAGE FORM, QD
     Route: 065
  26. ALPRAZOLAM [Interacting]
     Active Substance: ALPRAZOLAM
     Dosage: 0.5 MILLIGRAM
     Route: 065
  27. ALPRAZOLAM [Interacting]
     Active Substance: ALPRAZOLAM
     Dosage: 0.5 MILLIGRAM, QD (IF NEEDED)
     Route: 048
  28. ALPRAZOLAM [Interacting]
     Active Substance: ALPRAZOLAM
     Dosage: UNK2 DF, QD/0,5 MG, AD HOC, USUALLY
     Route: 065
  29. ALPRAZOLAM [Interacting]
     Active Substance: ALPRAZOLAM
     Dosage: 1 MILLIGRAM, QD
     Route: 065
  30. ALPRAZOLAM [Interacting]
     Active Substance: ALPRAZOLAM
     Dosage: UNK, BID
     Route: 065
  31. ALPRAZOLAM [Interacting]
     Active Substance: ALPRAZOLAM
     Dosage: 1 MILLIGRAM, 0.5 MG, 2X PER DAY
     Route: 065
  32. ISOSORBIDE MONONITRATE [Interacting]
     Active Substance: ISOSORBIDE MONONITRATE
     Indication: Product used for unknown indication
     Dosage: UNK, BID
     Route: 065
  33. ISOSORBIDE MONONITRATE [Interacting]
     Active Substance: ISOSORBIDE MONONITRATE
     Dosage: WHEN NECESSARY, ON AVERAGE 1-2/24 H
     Route: 065
  34. ISOSORBIDE MONONITRATE [Interacting]
     Active Substance: ISOSORBIDE MONONITRATE
     Dosage: (50 MG, AD HOC, USUALLY,1-2 TABLETS A DAY)
     Route: 065
  35. ISOSORBIDE MONONITRATE [Interacting]
     Active Substance: ISOSORBIDE MONONITRATE
     Dosage: UNK, BID
     Route: 065
  36. ISOSORBIDE MONONITRATE [Interacting]
     Active Substance: ISOSORBIDE MONONITRATE
     Dosage: (50 MG, AD HOC, USUALLY,1-2 TABLETS A DAY)
     Route: 065
  37. ISOSORBIDE MONONITRATE [Interacting]
     Active Substance: ISOSORBIDE MONONITRATE
     Dosage: UNK
     Route: 065
  38. ISOSORBIDE MONONITRATE [Interacting]
     Active Substance: ISOSORBIDE MONONITRATE
     Dosage: 100 MILLIGRAM, QD (AS NEEDED, AV. ONCE/TWICE DIAILY)
     Route: 065
  39. METOPROLOL [Interacting]
     Active Substance: METOPROLOL
     Indication: Hypertension
     Dosage: (0.5 DAY) 1-0-1
     Route: 065
  40. METOPROLOL [Interacting]
     Active Substance: METOPROLOL
     Indication: Type 2 diabetes mellitus
     Dosage: (0.5 DAY) 1-0-1/2 (DOSE REDUCE); AT LEAST FOR 2 YEARS
     Route: 065
  41. METOPROLOL [Interacting]
     Active Substance: METOPROLOL
     Dosage: 1 DOSAGE FORM, BID (1-0-1)
     Route: 065
  42. METOPROLOL [Interacting]
     Active Substance: METOPROLOL
     Dosage: 50 MILLIGRAM BID (DOSAGE SCHEDULE: 1-0-1)
     Route: 065
  43. METOPROLOL [Interacting]
     Active Substance: METOPROLOL
     Dosage: 50 MG 1-0-1/2
     Route: 065
  44. METOPROLOL [Interacting]
     Active Substance: METOPROLOL
     Dosage: 1 DOSAGE FORM, QD
     Route: 065
  45. METFORMIN [Suspect]
     Active Substance: METFORMIN HYDROCHLORIDE
     Indication: Type 2 diabetes mellitus
     Dosage: UNK
     Route: 065
  46. METFORMIN [Suspect]
     Active Substance: METFORMIN HYDROCHLORIDE
     Dosage: UNK
     Route: 048
  47. ZOLPIDEM [Interacting]
     Active Substance: ZOLPIDEM TARTRATE
     Indication: Depression
     Dosage: 10 MILLIGRAM, QD(0-0-1 )
     Route: 065
  48. ZOLPIDEM [Interacting]
     Active Substance: ZOLPIDEM TARTRATE
     Dosage: 1 DOSAGE FORM, QD
     Route: 065
  49. ZOLPIDEM [Interacting]
     Active Substance: ZOLPIDEM TARTRATE
     Dosage: 0-0-1
     Route: 065
  50. ZOLPIDEM [Interacting]
     Active Substance: ZOLPIDEM TARTRATE
     Dosage: 100 MG, QD/0-0-1
     Route: 065
  51. ZOLPIDEM [Interacting]
     Active Substance: ZOLPIDEM TARTRATE
     Dosage: 10 MILLIGRAM, QD
     Route: 048
  52. DONEPEZIL [Suspect]
     Active Substance: DONEPEZIL
     Indication: Product used for unknown indication
     Dosage: 5 MILLIGRAM
     Route: 065
  53. BENSERAZIDE\LEVODOPA [Suspect]
     Active Substance: BENSERAZIDE\LEVODOPA
     Indication: Product used for unknown indication
     Dosage: 187.5 MILLIGRAM, QD
     Route: 065
  54. ATORVASTATIN [Interacting]
     Active Substance: ATORVASTATIN
     Indication: Product used for unknown indication
     Dosage: 0-0-1
     Route: 065
  55. ATORVASTATIN [Interacting]
     Active Substance: ATORVASTATIN
     Dosage: 1 DOSAGE FORM, QD
     Route: 065
  56. ATORVASTATIN [Interacting]
     Active Substance: ATORVASTATIN
     Dosage: 20 MILLIGRAM, QD (0-0-1)
     Route: 065
  57. ATORVASTATIN [Interacting]
     Active Substance: ATORVASTATIN
     Dosage: 20 MILLIGRAM, QD
     Route: 048
  58. QUETIAPINE [Suspect]
     Active Substance: QUETIAPINE
     Indication: Product used for unknown indication
     Dosage: 25 MILLIGRAM, QD
     Route: 065
  59. BETAHISTINE [Interacting]
     Active Substance: BETAHISTINE
     Indication: Product used for unknown indication
     Dosage: 0-1-0
     Route: 065
  60. BETAHISTINE [Interacting]
     Active Substance: BETAHISTINE
     Dosage: 24 MILLIGRAM, QD (0-1-0)
     Route: 065
  61. BETAHISTINE [Interacting]
     Active Substance: BETAHISTINE
     Dosage: 0-1-0
     Route: 065
  62. BETAHISTINE [Interacting]
     Active Substance: BETAHISTINE
     Dosage: 24 MILLIGRAM, QD (0-1-0)
     Route: 048
  63. BETAHISTINE [Interacting]
     Active Substance: BETAHISTINE
     Dosage: 20 MILLIGRAM, QD
     Route: 065
  64. BETAHISTINE [Interacting]
     Active Substance: BETAHISTINE
     Dosage: 1024 MILLIGRAM, QD
     Route: 065
  65. BETAHISTINE [Interacting]
     Active Substance: BETAHISTINE
     Dosage: 20 MILLIGRAM, BID
     Route: 065
  66. BETAHISTINE [Interacting]
     Active Substance: BETAHISTINE
     Dosage: 0-1-0
     Route: 065
  67. BETAHISTINE [Interacting]
     Active Substance: BETAHISTINE
     Route: 048
  68. BETAHISTINE [Interacting]
     Active Substance: BETAHISTINE
     Route: 065
  69. BETAHISTINE [Interacting]
     Active Substance: BETAHISTINE
     Route: 065
  70. BETAHISTINE [Interacting]
     Active Substance: BETAHISTINE
     Route: 065
  71. GLICLAZIDE [Interacting]
     Active Substance: GLICLAZIDE
     Indication: Type 2 diabetes mellitus
     Dosage: (0.3 DAY) 1-1-1
     Route: 065
  72. GLICLAZIDE [Interacting]
     Active Substance: GLICLAZIDE
     Dosage: 3 DOSAGE FORM, QD, 1-1-1 (60 MG 3 X/24 H)
     Route: 065
  73. GLICLAZIDE [Interacting]
     Active Substance: GLICLAZIDE
     Dosage: 180 MILLIGRAM, QD
     Route: 065
  74. GLICLAZIDE [Interacting]
     Active Substance: GLICLAZIDE
     Dosage: 60 MILLIGRAM, TID
     Route: 065
  75. GLICLAZIDE [Interacting]
     Active Substance: GLICLAZIDE
     Dosage: 60 MG, TID/1-1-1
     Route: 065
  76. ALBUTEROL [Interacting]
     Active Substance: ALBUTEROL
     Indication: Product used for unknown indication
     Dosage: 100 MICROGRAM (INTERMITTENTLY)
     Route: 065
  77. ALBUTEROL [Interacting]
     Active Substance: ALBUTEROL
     Dosage: UNK, PRN
     Route: 065
  78. ALBUTEROL [Interacting]
     Active Substance: ALBUTEROL
     Dosage: UNK
     Route: 065
  79. ALBUTEROL [Interacting]
     Active Substance: ALBUTEROL
     Dosage: UNK,ASNECESSARY
     Route: 065
  80. ALBUTEROL [Interacting]
     Active Substance: ALBUTEROL
     Dosage: 100 MICROGRAM
     Route: 048
  81. ALBUTEROL [Interacting]
     Active Substance: ALBUTEROL
     Dosage: 20 MILLIGRAM, BID
     Route: 065
  82. ALBUTEROL [Interacting]
     Active Substance: ALBUTEROL
     Dosage: 20 MILLIGRAM, BID
     Route: 065
  83. CALCIUM LACTATE [Suspect]
     Active Substance: CALCIUM LACTATE
     Indication: Product used for unknown indication
     Dosage: 1 TABLET (391 K +) EVERY 2 DAYS
     Route: 065
  84. HYDROXYZINE HYDROCHLORIDE [Suspect]
     Active Substance: HYDROXYZINE HYDROCHLORIDE
     Indication: Product used for unknown indication
     Dosage: DOSAGE SCHEDULE: INTERMITTENTLY, ON AVERAGE 2 TIMES/24H
     Route: 065
  85. HYDROXYZINE HYDROCHLORIDE [Suspect]
     Active Substance: HYDROXYZINE HYDROCHLORIDE
     Dosage: 25 MG, AS NEEDED, AV. TWICE DAILY), STRENGTH 25 MG
     Route: 065
  86. TRAMADOL [Interacting]
     Active Substance: TRAMADOL
     Indication: Pain
     Dosage: 200 MILLIGRAM (INTERMITTENTLY)
     Route: 048
  87. TRAMADOL [Interacting]
     Active Substance: TRAMADOL
     Dosage: 2 DOSAGE FORM, PRN
     Route: 048
  88. TRAMADOL [Interacting]
     Active Substance: TRAMADOL
     Dosage: AS NECESSARY 2 TABLETS
     Route: 065
  89. TRAMADOL [Interacting]
     Active Substance: TRAMADOL
     Dosage: 100 MILLIGRAM RELIEF MEDICATION
     Route: 065
  90. TRAMADOL [Interacting]
     Active Substance: TRAMADOL
     Dosage: 50 MILLIGRAM RELIEF MEDICATION
     Route: 065
  91. TRAMADOL [Interacting]
     Active Substance: TRAMADOL
     Dosage: 200 MILLIGRAM, QD (IF NEEDED)
     Route: 048
  92. TRAMADOL [Interacting]
     Active Substance: TRAMADOL
     Dosage: UNK
     Route: 065
  93. TRAMADOL [Interacting]
     Active Substance: TRAMADOL
     Dosage: UNK, AS NECESSARY 2 TABLETS
     Route: 065
  94. CITALOPRAM [Interacting]
     Active Substance: CITALOPRAM HYDROBROMIDE
     Indication: Depression
     Dosage: 40 MILLIGRAM, QD (0-0-1)
     Route: 048
  95. CITALOPRAM [Interacting]
     Active Substance: CITALOPRAM HYDROBROMIDE
     Dosage: 1 DOSAGE FORM, QD(1-0-0 )
     Route: 065
  96. CITALOPRAM [Interacting]
     Active Substance: CITALOPRAM HYDROBROMIDE
     Dosage: 1-0-0
     Route: 065
  97. HYDROXYZINE HYDROCHLORIDE [Interacting]
     Active Substance: HYDROXYZINE HYDROCHLORIDE
     Indication: Product used for unknown indication
     Dosage: WHEN NECESSARY, ON AVERAGE 2/24 H
     Route: 065
  98. HYDROXYZINE HYDROCHLORIDE [Interacting]
     Active Substance: HYDROXYZINE HYDROCHLORIDE
     Dosage: 2 DF, QD/25 MG, AD HOC, USUALLY
     Route: 065
  99. HYDROXYZINE HYDROCHLORIDE [Interacting]
     Active Substance: HYDROXYZINE HYDROCHLORIDE
     Dosage: 25 MILLIGRAM, QD
     Route: 048
  100. HYDROXYZINE HYDROCHLORIDE [Interacting]
     Active Substance: HYDROXYZINE HYDROCHLORIDE
     Dosage: 25 MG, AS NEEDED, AV. TWICE DAILY), STRENGTH 25 MG
     Route: 065
  101. HYDROXYZINE HYDROCHLORIDE [Interacting]
     Active Substance: HYDROXYZINE HYDROCHLORIDE
     Dosage: UNK, QD
     Route: 065
  102. HYDROXYZINE HYDROCHLORIDE [Interacting]
     Active Substance: HYDROXYZINE HYDROCHLORIDE
     Dosage: 40 MILLIGRAM
     Route: 065
  103. HYDROCHLOROTHIAZIDE [Interacting]
     Active Substance: HYDROCHLOROTHIAZIDE
     Indication: Product used for unknown indication
     Dosage: 25 MILLIGRAM, QD (1-0-0)
     Route: 065
  104. HYDROCHLOROTHIAZIDE [Interacting]
     Active Substance: HYDROCHLOROTHIAZIDE
     Dosage: 1 DOSAGE FORM, QD
     Route: 065
  105. HYDROCHLOROTHIAZIDE [Interacting]
     Active Substance: HYDROCHLOROTHIAZIDE
     Dosage: 1-0-0
     Route: 065
  106. HYDROCHLOROTHIAZIDE [Interacting]
     Active Substance: HYDROCHLOROTHIAZIDE
     Dosage: 25 MILLIGRAM, QD (1-0-0)
     Route: 048
  107. HYDROCHLOROTHIAZIDE [Interacting]
     Active Substance: HYDROCHLOROTHIAZIDE
     Dosage: UNK, QD
     Route: 065
  108. HYDROCHLOROTHIAZIDE [Interacting]
     Active Substance: HYDROCHLOROTHIAZIDE
     Dosage: UNK, BID
     Route: 065
  109. HYDROCHLOROTHIAZIDE [Interacting]
     Active Substance: HYDROCHLOROTHIAZIDE
     Dosage: UNK, BID
     Route: 065
  110. HYDROCHLOROTHIAZIDE [Interacting]
     Active Substance: HYDROCHLOROTHIAZIDE
     Dosage: 1 DOSAGE FORM, QD, 1 DF, 1X/DAY
     Route: 065
  111. METOCLOPRAMIDE [Interacting]
     Active Substance: METOCLOPRAMIDE
     Indication: Constipation
     Dosage: 20 MILLIGRAM (INTERMITTENTLY IN CASE OF CONSTIPATION FOR MANY MONTHS)
     Route: 065
  112. METOCLOPRAMIDE [Interacting]
     Active Substance: METOCLOPRAMIDE
     Dosage: 2 DOSAGE FORM, PRN
     Route: 065
  113. METOCLOPRAMIDE [Interacting]
     Active Substance: METOCLOPRAMIDE
     Dosage: 2 DOSAGE FORM
     Route: 065
  114. METOCLOPRAMIDE [Interacting]
     Active Substance: METOCLOPRAMIDE
     Dosage: 20 MILLIGRAM, PRN
     Route: 048
  115. METOCLOPRAMIDE [Interacting]
     Active Substance: METOCLOPRAMIDE
     Dosage: 10 MG, UNK (AS NEEDED)
     Route: 065
  116. METOCLOPRAMIDE [Interacting]
     Active Substance: METOCLOPRAMIDE
     Dosage: 10 MILLIGRAM, 2 TABLETS AS NEEDED, IN CASE OF CONSTIPATION, BUT FOR MANY MONTHS
     Route: 065
  117. METOCLOPRAMIDE [Interacting]
     Active Substance: METOCLOPRAMIDE
     Dosage: UNK
     Route: 065
  118. METOCLOPRAMIDE [Interacting]
     Active Substance: METOCLOPRAMIDE
     Dosage: 10 MILLIGRAM, PRN
     Route: 065
  119. DABIGATRAN [Interacting]
     Active Substance: DABIGATRAN
     Indication: Product used for unknown indication
     Dosage: 110 MILLIGRAM (1-0-1; AT LEAST FOR 2 YEARS)
     Route: 065
  120. DABIGATRAN [Interacting]
     Active Substance: DABIGATRAN
     Dosage: 1 DOSAGE FORM, BID
     Route: 065
  121. DABIGATRAN [Interacting]
     Active Substance: DABIGATRAN
     Dosage: 1-0-1 (0.5 DAY)
     Route: 065
  122. DABIGATRAN [Interacting]
     Active Substance: DABIGATRAN
     Dosage: 110 MILLIGRAM, QD
     Route: 048
  123. DABIGATRAN [Interacting]
     Active Substance: DABIGATRAN
     Dosage: 110 MG, BID/DRUG LIST AT THE ADMISSION
     Route: 065
  124. DABIGATRAN [Interacting]
     Active Substance: DABIGATRAN
     Dosage: 20 MILLIGRAM, QD
     Route: 048
  125. DABIGATRAN [Interacting]
     Active Substance: DABIGATRAN
     Dosage: 2 DOSAGE FORM, QD, 1 DF, 2X/DAY (EVERY 12 HOURS)
     Route: 065
  126. FUROSEMIDE [Interacting]
     Active Substance: FUROSEMIDE
     Indication: Product used for unknown indication
     Dosage: 120 MILLIGRAM (40 MG; 3 TABLETS EVERY 2ND DAY)
     Route: 065
  127. FUROSEMIDE [Interacting]
     Active Substance: FUROSEMIDE
     Dosage: 3 DOSAGE FORM, EVERY 2 DAYS
     Route: 048
  128. FUROSEMIDE [Interacting]
     Active Substance: FUROSEMIDE
     Dosage: 40 MILLIGRAM
     Route: 065
  129. FUROSEMIDE [Interacting]
     Active Substance: FUROSEMIDE
     Dosage: 40 MILLIGRAM (3 TABLETS EVERY OTHER DAY)
     Route: 048
  130. FUROSEMIDE [Interacting]
     Active Substance: FUROSEMIDE
     Dosage: UNK
     Route: 065
  131. FUROSEMIDE [Interacting]
     Active Substance: FUROSEMIDE
     Dosage: 3 DF (3 TABLETS EVERY 2ND DAY). 120 MG
     Route: 065
  132. FUROSEMIDE [Interacting]
     Active Substance: FUROSEMIDE
     Dosage: 3 DOSAGE FORM, 1 DOSAGE FORM, QOD (3 DOSAGE FORM) (1 DOSAGE FORMS,1 IN 2 D)
     Route: 065
  133. RAMIPRIL [Interacting]
     Active Substance: RAMIPRIL
     Indication: Cardiac failure
     Dosage: 5 MILLIGRAM, QD (1-0-0, AT LEAST FOR 2 YEARS)
     Route: 048
  134. RAMIPRIL [Interacting]
     Active Substance: RAMIPRIL
     Dosage: 1 DOSAGE FORM, QD
     Route: 065
  135. RAMIPRIL [Interacting]
     Active Substance: RAMIPRIL
     Dosage: 1-0-0
     Route: 065
  136. RAMIPRIL [Interacting]
     Active Substance: RAMIPRIL
     Dosage: 1 DOSAGE FORM, QD, 1 DF, 1X/DAY
     Route: 065
  137. RAMIPRIL [Interacting]
     Active Substance: RAMIPRIL
     Dosage: 50 MILLIGRAM, BID
     Route: 065
  138. SPIRONOLACTONE [Interacting]
     Active Substance: SPIRONOLACTONE
     Indication: Product used for unknown indication
     Dosage: 100 MILLIGRAM, QD (0-1-0; AT LEAST FOR 2 YEARS  )
     Route: 065
  139. SPIRONOLACTONE [Interacting]
     Active Substance: SPIRONOLACTONE
     Dosage: 1 DOSAGE FORM, QD
     Route: 065
  140. SPIRONOLACTONE [Interacting]
     Active Substance: SPIRONOLACTONE
     Dosage: UNK, QD, 0-1-0
     Route: 065
  141. SPIRONOLACTONE [Interacting]
     Active Substance: SPIRONOLACTONE
     Dosage: 100 MILLIGRAM, QD
     Route: 048
  142. SPIRONOLACTONE [Interacting]
     Active Substance: SPIRONOLACTONE
     Dosage: UNK, BID
     Route: 065
  143. SPIRONOLACTONE [Interacting]
     Active Substance: SPIRONOLACTONE
     Dosage: UNK, BID
     Route: 065
  144. SPIRONOLACTONE [Interacting]
     Active Substance: SPIRONOLACTONE
     Dosage: 1 DOSAGE FORM, QD, 1 DF, 1X/DAY
     Route: 065
  145. LEVOTHYROXINE [Interacting]
     Active Substance: LEVOTHYROXINE
     Indication: Product used for unknown indication
     Dosage: 100 MICROGRAM, QD (1-0-0; AT LEAST FOR 2 YEARS  )
     Route: 065
  146. LEVOTHYROXINE [Interacting]
     Active Substance: LEVOTHYROXINE
     Dosage: 1 DOSAGE FORM, QD
     Route: 065
  147. LEVOTHYROXINE [Interacting]
     Active Substance: LEVOTHYROXINE
     Dosage: 1-0-0
     Route: 065
  148. LEVOTHYROXINE [Interacting]
     Active Substance: LEVOTHYROXINE
     Dosage: 100 MICROGRAM, QD
     Route: 048
  149. LEVOTHYROXINE [Interacting]
     Active Substance: LEVOTHYROXINE
     Dosage: 20 MILLIGRAM, QD (EVERY 24 HOURS)
     Route: 048
  150. LEVOTHYROXINE [Interacting]
     Active Substance: LEVOTHYROXINE
     Dosage: 20 MILLIGRAM,  (EVERY 12 HOURS)
     Route: 048
  151. LEVOTHYROXINE [Interacting]
     Active Substance: LEVOTHYROXINE
     Dosage: 20 MILLIGRAM, QD (EVERY 24 HOURS)
     Route: 048
  152. LEVOTHYROXINE [Interacting]
     Active Substance: LEVOTHYROXINE
     Dosage: 100 MICROGRAM, QD, 100 UG, 1X PER DAY, IN THE MORNING
     Route: 065
  153. TORSEMIDE [Suspect]
     Active Substance: TORSEMIDE
     Indication: Product used for unknown indication
     Dosage: 5 MG, QD/1-0-0
     Route: 065
  154. TORSEMIDE [Suspect]
     Active Substance: TORSEMIDE
     Dosage: UNK
     Route: 048
  155. POTASSIUM CHLORIDE [Interacting]
     Active Substance: POTASSIUM CHLORIDE
     Indication: Product used for unknown indication
     Dosage: 391 MILLIGRAM
     Route: 065
  156. POTASSIUM CHLORIDE [Interacting]
     Active Substance: POTASSIUM CHLORIDE
     Dosage: 1 DOSAGE FORM, EVERY 2 DAYS
     Route: 065
  157. POTASSIUM CHLORIDE [Interacting]
     Active Substance: POTASSIUM CHLORIDE
     Dosage: 391 MILLIGRAM (1 TABLET EVERY OTHER DAY)
     Route: 048
  158. POTASSIUM CHLORIDE [Interacting]
     Active Substance: POTASSIUM CHLORIDE
     Dosage: 391 MG, BID
     Route: 065
  159. POTASSIUM CHLORIDE [Interacting]
     Active Substance: POTASSIUM CHLORIDE
     Dosage: 20 MILLIGRAM, BID
     Route: 065
  160. POTASSIUM CHLORIDE [Interacting]
     Active Substance: POTASSIUM CHLORIDE
     Dosage: 20 MILLIGRAM, BID
     Route: 065
  161. POTASSIUM CHLORIDE [Interacting]
     Active Substance: POTASSIUM CHLORIDE
     Dosage: 2 DOSAGE FORM, QD2, 2 DOSAGE FORMS DAILY; 1 TABLET (391 K PLUS) EVERY 2 DAYS (1 DOSAGE FORMS,1 IN 2
     Route: 065
  162. NIKETHAMIDE [Interacting]
     Active Substance: NIKETHAMIDE
     Indication: Product used for unknown indication
     Dosage: 125 MILLIGRAM, INTERMITTENTLY
     Route: 065
  163. NIKETHAMIDE [Interacting]
     Active Substance: NIKETHAMIDE
     Dosage: UNK
     Route: 065
  164. DEXTROSE\NIKETHAMIDE [Suspect]
     Active Substance: DEXTROSE\NIKETHAMIDE
     Indication: Product used for unknown indication
     Dosage: UNK, PRN, 1.5 MG/125 MG, AS NEEDED
     Route: 065
  165. DEXTROSE\NIKETHAMIDE [Suspect]
     Active Substance: DEXTROSE\NIKETHAMIDE
     Dosage: UNK, 1,5 + 125 MG, AD HOC
     Route: 065
  166. DEXTROSE\NIKETHAMIDE [Suspect]
     Active Substance: DEXTROSE\NIKETHAMIDE
     Dosage: 20 MILLIGRAM, BID
     Route: 065
  167. DEXTROSE\NIKETHAMIDE [Suspect]
     Active Substance: DEXTROSE\NIKETHAMIDE
     Dosage: 1.5 MILLIGRAM,1.5 MILLIGRAM (INTERMITTENTLY)
     Route: 065
  168. DEXTROSE\NIKETHAMIDE [Suspect]
     Active Substance: DEXTROSE\NIKETHAMIDE
     Dosage: 20 MILLIGRAM, BID
     Route: 065
  169. ALLOPURINOL [Interacting]
     Active Substance: ALLOPURINOL
     Indication: Product used for unknown indication
     Dosage: 100 MILLIGRAM, QD (1-0-0)
     Route: 048
  170. ALLOPURINOL [Interacting]
     Active Substance: ALLOPURINOL
     Dosage: 1 DOSAGE FORM, QD
     Route: 065
  171. ALLOPURINOL [Interacting]
     Active Substance: ALLOPURINOL
     Dosage: 1-0-0
     Route: 065
  172. ALLOPURINOL [Interacting]
     Active Substance: ALLOPURINOL
     Dosage: 50 MILLIGRAM, QD
     Route: 048
  173. ALLOPURINOL [Interacting]
     Active Substance: ALLOPURINOL
     Dosage: UNK, BID
     Route: 065
  174. ALLOPURINOL [Interacting]
     Active Substance: ALLOPURINOL
     Dosage: UNK, BID
     Route: 065
  175. ALLOPURINOL [Interacting]
     Active Substance: ALLOPURINOL
     Dosage: 100 MILLIGRAM, QD (1-0-0)
     Route: 065
  176. ALLOPURINOL [Interacting]
     Active Substance: ALLOPURINOL
     Dosage: 1 DOSAGE FORM, QD,1 DF, 1X/DAY
     Route: 065
  177. DENOSUMAB [Suspect]
     Active Substance: DENOSUMAB
     Indication: Product used for unknown indication
     Dosage: 60 MILLIGRAM
     Route: 065
  178. BETAHISTINE HYDROCHLORIDE [Suspect]
     Active Substance: BETAHISTINE HYDROCHLORIDE
     Indication: Product used for unknown indication
     Dosage: 24 MILLIGRAM, QD
     Route: 065
  179. CHOLECALCIFEROL [Suspect]
     Active Substance: CHOLECALCIFEROL
     Indication: Product used for unknown indication
     Dosage: UNK, QD (1 QD)
     Route: 065
  180. ZOLPIDEM [Suspect]
     Active Substance: ZOLPIDEM TARTRATE
     Indication: Depression
     Dosage: UNK, QD
     Route: 065
  181. ZOLPIDEM [Suspect]
     Active Substance: ZOLPIDEM TARTRATE
     Dosage: UNK, BID
     Route: 065
  182. ZOLPIDEM [Suspect]
     Active Substance: ZOLPIDEM TARTRATE
     Dosage: UNK, BID
     Route: 065
  183. ZOLPIDEM [Suspect]
     Active Substance: ZOLPIDEM TARTRATE
     Dosage: 100 MILLIGRAM, QD
     Route: 065
  184. TRAMADOL [Suspect]
     Active Substance: TRAMADOL
     Indication: Pain
     Dosage: 100 MILLIGRAM, BID
     Route: 065
  185. TRAMADOL [Suspect]
     Active Substance: TRAMADOL
     Dosage: 20 MILLIGRAM, BID
     Route: 065
  186. TRAMADOL [Suspect]
     Active Substance: TRAMADOL
     Dosage: 20 MILLIGRAM, BID
     Route: 065
  187. TRAMADOL [Suspect]
     Active Substance: TRAMADOL
     Dosage: 50 MILLIGRAM
     Route: 065
  188. POTASSIUM CHLORIDE [Interacting]
     Active Substance: POTASSIUM CHLORIDE
     Indication: Product used for unknown indication
     Dosage: 391 MILLIGRAM, , EVERY OTHER DAY
     Route: 065
  189. ZOLPIDEM [Suspect]
     Active Substance: ZOLPIDEM TARTRATE
     Indication: Product used for unknown indication
     Dosage: 10 MILLIGRAM, QD
     Route: 048
  190. ZOLPIDEM [Suspect]
     Active Substance: ZOLPIDEM TARTRATE
     Dosage: 1 DOSAGE FORM, QD, 1 DF, 1X/DAY
     Route: 065
  191. HYDROXYZINE [Suspect]
     Active Substance: HYDROXYZINE HYDROCHLORIDE
     Indication: Product used for unknown indication
     Dosage: 40 MILLIGRAM, QD
     Route: 065
  192. HYDROXYZINE [Suspect]
     Active Substance: HYDROXYZINE HYDROCHLORIDE
     Dosage: UNK, AS NECASSARY, USUALLY 2 X /24 H
     Route: 065
  193. LEVOTHYROXINE SODIUM [Interacting]
     Active Substance: LEVOTHYROXINE SODIUM
     Indication: Product used for unknown indication
     Dosage: 100 MILLIGRAM, QD (1-0-1)
     Route: 065
  194. POTASSIUM CHLORIDE\RIBOFLAVIN 5^-PHOSPHATE SODIUM [Interacting]
     Active Substance: POTASSIUM CHLORIDE\RIBOFLAVIN 5^-PHOSPHATE SODIUM
     Indication: Product used for unknown indication
     Dosage: UNK
     Route: 065
  195. METOPROLOL [Interacting]
     Active Substance: METOPROLOL
     Indication: Product used for unknown indication
     Dosage: 50 MILLIGRAM
     Route: 065
  196. METOPROLOL [Interacting]
     Active Substance: METOPROLOL
     Dosage: 50 MILLIGRAM, QD
     Route: 048
  197. METOPROLOL [Interacting]
     Active Substance: METOPROLOL
     Dosage: 2 DOSAGE FORM, QD (1-0-1  )
     Route: 065
  198. GLICLAZIDE [Concomitant]
     Active Substance: GLICLAZIDE
     Indication: Type 2 diabetes mellitus
     Dosage: 60 MILLIGRAM, Q8H (1-1-1)
     Route: 065
  199. GLICLAZIDE [Concomitant]
     Active Substance: GLICLAZIDE
     Dosage: 60 MILLIGRAM, QD
     Route: 048
  200. OMEPRAZOLE [Interacting]
     Active Substance: OMEPRAZOLE
     Indication: Product used for unknown indication
     Dosage: 20 MILLIGRAM, QD (1-1-0 )
     Route: 065
  201. OMEPRAZOLE [Interacting]
     Active Substance: OMEPRAZOLE
     Dosage: 2 DOSAGE FORM, QD, 1-1-0
     Route: 065
  202. OMEPRAZOLE [Interacting]
     Active Substance: OMEPRAZOLE
     Dosage: 20 MILLIGRAM, QD
     Route: 048
  203. OMEPRAZOLE [Interacting]
     Active Substance: OMEPRAZOLE
     Dosage: 20 MG, BID (1-1-0)
     Route: 065
  204. ISOSORBIDE MONONITRATE [Concomitant]
     Active Substance: ISOSORBIDE MONONITRATE
     Indication: Product used for unknown indication
     Dosage: INTERMITTENTLY, ON AVERAGE 1-2 TIMES/24H
     Route: 065
  205. ISOSORBIDE MONONITRATE [Concomitant]
     Active Substance: ISOSORBIDE MONONITRATE
     Dosage: 50 MILLIGRAM
     Route: 065
  206. ISOSORBIDE MONONITRATE [Concomitant]
     Active Substance: ISOSORBIDE MONONITRATE
     Dosage: AS NECESSARY, 1-2X/24 H ON AVERAGE
     Route: 065
  207. ISOSORBIDE MONONITRATE [Concomitant]
     Active Substance: ISOSORBIDE MONONITRATE
     Dosage: 50 MILLIGRAM, QD (IF NEEDED)
     Route: 048
  208. ISOSORBIDE MONONITRATE [Concomitant]
     Active Substance: ISOSORBIDE MONONITRATE
     Dosage: (50 MG, AD HOC, USUALLY,1-2 TABLETS A DAY)
     Route: 065
  209. ISOSORBIDE MONONITRATE [Concomitant]
     Active Substance: ISOSORBIDE MONONITRATE
     Dosage: 50 MG, BID (AS NEEDED, AV. ONCE/TWICE DAILY)
     Route: 065
  210. ALBUTEROL [Concomitant]
     Active Substance: ALBUTEROL
     Indication: Product used for unknown indication
     Dosage: 100 MICROGRAM INTERMITTENTLY
     Route: 065
  211. LEVOTHYROXINE [Concomitant]
     Active Substance: LEVOTHYROXINE
     Indication: Product used for unknown indication
     Dosage: 100 MICROGRAM, QD
     Route: 065
  212. ACETAMINOPHEN [Concomitant]
     Active Substance: ACETAMINOPHEN
     Indication: Product used for unknown indication
     Dosage: 500 MILLIGRAM, QD
     Route: 065
  213. SPIRONOLACTONE [Concomitant]
     Active Substance: SPIRONOLACTONE
     Indication: Product used for unknown indication
     Dosage: 100 MILLIGRAM, QD
     Route: 065
  214. HYDROCHLOROTHIAZIDE [Concomitant]
     Active Substance: HYDROCHLOROTHIAZIDE
     Indication: Product used for unknown indication
     Dosage: 25 MILLIGRAM, QD
     Route: 065
  215. ATORVASTATIN [Concomitant]
     Active Substance: ATORVASTATIN
     Indication: Product used for unknown indication
     Dosage: 20 MILLIGRAM, QD
     Route: 065
  216. ALLOPURINOL [Concomitant]
     Active Substance: ALLOPURINOL
     Indication: Product used for unknown indication
     Dosage: 100 MILLIGRAM, QD
     Route: 065
  217. TORSEMIDE [Concomitant]
     Active Substance: TORSEMIDE
     Indication: Product used for unknown indication
     Dosage: UNK
     Route: 065
  218. QUETIAPINE [Concomitant]
     Active Substance: QUETIAPINE
     Indication: Product used for unknown indication
     Dosage: UNK
     Route: 065
  219. QUETIAPINE [Concomitant]
     Active Substance: QUETIAPINE
     Dosage: 25 MILLIGRAM, QD
     Route: 065
  220. TRAMADOL [Concomitant]
     Active Substance: TRAMADOL
     Indication: Product used for unknown indication
     Dosage: 200 MILLIGRAM INTERMITTENTLY
     Route: 065
  221. DEXTROSE [Concomitant]
     Active Substance: DEXTROSE
     Indication: Product used for unknown indication
     Dosage: 1.5 MILLIGRAM INTERMITTENTLY
     Route: 065
  222. DABIGATRAN [Concomitant]
     Active Substance: DABIGATRAN
     Indication: Product used for unknown indication
     Dosage: 110 MILLIGRAM, BID
     Route: 065
  223. DABIGATRAN [Concomitant]
     Active Substance: DABIGATRAN
     Indication: Product used for unknown indication
  224. FUROSEMIDE [Concomitant]
     Active Substance: FUROSEMIDE
     Indication: Product used for unknown indication
     Dosage: 120 MILLIGRAM, QOD
     Route: 065
  225. ALPRAZOLAM [Concomitant]
     Active Substance: ALPRAZOLAM
     Indication: Product used for unknown indication
     Dosage: 0.5 MILLIGRAM INTERMITTENTLY ON AVERAGE 2 TIMES/24 H
     Route: 065
  226. BETAHISTINE [Concomitant]
     Active Substance: BETAHISTINE
     Indication: Product used for unknown indication
     Dosage: 24 MILLIGRAM, QD
     Route: 065
  227. METFORMIN [Concomitant]
     Active Substance: METFORMIN HYDROCHLORIDE
     Indication: Product used for unknown indication
     Dosage: UNK
     Route: 065
  228. METOCLOPRAMIDE [Concomitant]
     Active Substance: METOCLOPRAMIDE
     Indication: Constipation
     Dosage: 20 MILLIGRAM INTERMITTENTLY IN CASE OF CONSTIPATION FOR MANY MONTHS
     Route: 065
  229. VORTIOXETINE [Concomitant]
     Active Substance: VORTIOXETINE
     Indication: Product used for unknown indication
     Dosage: 10 MILLIGRAM, QD
     Route: 065
  230. RAMIPRIL [Concomitant]
     Active Substance: RAMIPRIL
     Indication: Product used for unknown indication
     Dosage: 5 MILLIGRAM, QD
     Route: 065
  231. POTASSIUM CHLORIDE [Concomitant]
     Active Substance: POTASSIUM CHLORIDE
     Indication: Product used for unknown indication
     Dosage: 391 MILLIGRAM, QOD
     Route: 065
  232. CITALOPRAM [Concomitant]
     Active Substance: CITALOPRAM HYDROBROMIDE
     Indication: Product used for unknown indication
     Dosage: 40 MILLIGRAM, QD
     Route: 065

REACTIONS (65)
  - Abdominal pain upper [Unknown]
  - Syncope [Recovering/Resolving]
  - Melaena [Unknown]
  - Dementia [Unknown]
  - Multiple drug therapy [Unknown]
  - Hypoglycaemia [Unknown]
  - Arthralgia [Unknown]
  - Motor dysfunction [Recovering/Resolving]
  - Diabetes mellitus inadequate control [Unknown]
  - Pruritus [Unknown]
  - Dizziness [Recovering/Resolving]
  - Fall [Recovering/Resolving]
  - Nausea [Unknown]
  - Mobility decreased [Recovering/Resolving]
  - Constipation [Unknown]
  - Insomnia [Unknown]
  - Urinary retention [Unknown]
  - Drug dependence [Unknown]
  - Parkinsonism [Unknown]
  - Peripheral circulatory failure [Unknown]
  - Osteoporosis [Unknown]
  - Hypotonia [Unknown]
  - Hyponatraemia [Unknown]
  - Muscle rigidity [Unknown]
  - Bradykinesia [Unknown]
  - Sedation [Recovering/Resolving]
  - Cognitive disorder [Unknown]
  - Depression [Unknown]
  - Hypotension [Recovering/Resolving]
  - Stupor [Unknown]
  - Blood pressure decreased [Unknown]
  - Hiatus hernia [Unknown]
  - Hyperkalaemia [Unknown]
  - Gastric polyps [Unknown]
  - Atrioventricular block first degree [Recovering/Resolving]
  - Neuroglycopenia [Unknown]
  - Dysuria [Unknown]
  - Initial insomnia [Unknown]
  - Hyperglycaemia [Unknown]
  - Off label use [Unknown]
  - Drug interaction [Unknown]
  - Medication error [Unknown]
  - Drug ineffective [Unknown]
  - Product use in unapproved indication [Unknown]
  - Labelled drug-drug interaction issue [Recovered/Resolved]
  - Hyperkalaemia [Unknown]
  - Hyponatraemia [Unknown]
  - Product use issue [Unknown]
  - Product administration error [Unknown]
  - Incorrect product administration duration [Unknown]
  - Cardiac failure [Unknown]
  - Type 2 diabetes mellitus [Unknown]
  - Atrial fibrillation [Unknown]
  - Gastrointestinal disorder [Unknown]
  - Pancreatitis acute [Unknown]
  - Coronary artery disease [Unknown]
  - Hypertension [Unknown]
  - Obesity [Unknown]
  - Autoimmune thyroiditis [Unknown]
  - Peptic ulcer [Unknown]
  - Deep vein thrombosis [Unknown]
  - Femur fracture [Unknown]
  - Micturition disorder [Unknown]
  - Chronic kidney disease [Unknown]
  - Cholecystectomy [Unknown]

NARRATIVE: CASE EVENT DATE: 20210101
